FAERS Safety Report 5881900-2 (Version None)
Quarter: 2008Q3

REPORT INFORMATION
  Report Type: 
  Country: None (occurrence: None)
  Receive Date: 20080912
  Receipt Date: 20080729
  Transmission Date: 20090109
  Serious: No
  Sender: FDA-Public Use
  Company Number: US-ABBOTT-08P-163-0463692-00

PATIENT
  Sex: Female
  Weight: 90.9 kg

DRUGS (15)
  1. HUMIRA [Suspect]
     Indication: RHEUMATOID ARTHRITIS
     Route: 050
     Dates: start: 20080617
  2. METFORMIN HCL [Concomitant]
     Indication: DIABETES MELLITUS
     Dosage: 2AM AND 2PM
     Route: 048
     Dates: start: 20030101
  3. SITAGLIPTIN PHOSPHATE [Concomitant]
     Indication: DIABETES MELLITUS
  4. DIOVAN HCT [Concomitant]
     Indication: HYPERTENSION
     Dosage: 160/12.5
  5. CETIRIZINE HYDROCHLORIDE [Concomitant]
     Indication: HYPERSENSITIVITY
  6. MONTELUKAST SODIUM [Concomitant]
     Indication: HYPERSENSITIVITY
     Route: 048
  7. PREDNISONE ACETATE [Concomitant]
     Indication: RHEUMATOID ARTHRITIS
     Route: 048
     Dates: start: 20080722
  8. SERETIDE [Concomitant]
     Indication: HYPERSENSITIVITY
     Dosage: 250/50
  9. TRAMADOL HCL [Concomitant]
     Indication: PAIN
     Dosage: 37.5/32.5, AS REQUIRED
     Route: 048
     Dates: start: 20060101
  10. IBUPROFEN [Concomitant]
     Indication: PAIN
     Route: 048
  11. HYDROXYZINE [Concomitant]
     Indication: PRURITUS
     Route: 048
     Dates: start: 20080501
  12. ASOFEX [Concomitant]
     Indication: GASTROOESOPHAGEAL REFLUX DISEASE
     Dates: start: 20030101
  13. GLIMEPIRIDE [Concomitant]
     Indication: DIABETES MELLITUS
     Dates: start: 20080721
  14. MOMETASONE FUROATE [Concomitant]
     Indication: HYPERSENSITIVITY
     Dosage: EVERY NIGHT
     Route: 061
  15. INDOMETACIN SODIUM [Concomitant]
     Indication: PAIN
     Dosage: ONE TO TWO TIMES DAILY
     Route: 048
     Dates: start: 20080721

REACTIONS (12)
  - BLOOD GLUCOSE INCREASED [None]
  - COUGH [None]
  - DIARRHOEA [None]
  - ERUCTATION [None]
  - ERYTHEMA [None]
  - FUNGAL INFECTION [None]
  - HEART RATE IRREGULAR [None]
  - HYPOAESTHESIA [None]
  - NAUSEA [None]
  - OEDEMA PERIPHERAL [None]
  - PAIN [None]
  - PARAESTHESIA [None]
